FAERS Safety Report 4916521-9 (Version None)
Quarter: 2006Q1

REPORT INFORMATION
  Report Type: 
  Country: None (occurrence: None)
  Receive Date: 20060220
  Receipt Date: 20051118
  Transmission Date: 20060701
  Serious: Yes (Other)
  Sender: FDA-Public Use
  Company Number: PHBS2005BR17153

PATIENT
  Age: 36 Year
  Sex: Female
  Weight: 46 kg

DRUGS (2)
  1. PARLODEL [Suspect]
     Indication: BLOOD PROLACTIN DECREASED
     Dosage: UNK, UNK
  2. PARLODEL [Suspect]
     Route: 048
     Dates: start: 20051117, end: 20051118

REACTIONS (12)
  - ABDOMINAL PAIN UPPER [None]
  - COLD SWEAT [None]
  - DIFFICULTY IN WALKING [None]
  - DIZZINESS [None]
  - DYSURIA [None]
  - GASTRITIS [None]
  - HYPOTENSION [None]
  - MALAISE [None]
  - NAUSEA [None]
  - PYREXIA [None]
  - URINARY TRACT INFECTION [None]
  - VOMITING [None]
